FAERS Safety Report 24169188 (Version 1)
Quarter: 2024Q3

REPORT INFORMATION
  Report Type: Spontaneous
  Country: NL (occurrence: NL)
  Receive Date: 20240802
  Receipt Date: 20240802
  Transmission Date: 20241016
  Serious: Yes (Death)
  Sender: MYLAN
  Company Number: None

PATIENT
  Age: 91 Year
  Sex: Male

DRUGS (7)
  1. ABIRATERONE [Suspect]
     Active Substance: ABIRATERONE
     Indication: Prostate cancer
     Dosage: 500 MILLIGRAM, BID (1DD2T)
     Route: 065
     Dates: start: 20240501
  2. CARBASPIRIN [Concomitant]
     Active Substance: CARBASPIRIN
     Dosage: 80 MILLIGRAM
     Route: 065
  3. VOLCOLON [Concomitant]
     Dosage: POUCH (GRANULES) 3.6 G (GRAM)
     Route: 065
  4. OMEPRAZOLE MAGNESIUM [Concomitant]
     Active Substance: OMEPRAZOLE MAGNESIUM
     Dosage: 20 MG (MILLIGRAM)
     Route: 065
  5. PREDNISOLONE [Concomitant]
     Active Substance: PREDNISOLONE
     Dosage: 10 MG (MILLIGRAM)
     Route: 065
  6. BISOPROLOL [Concomitant]
     Active Substance: BISOPROLOL\BISOPROLOL FUMARATE
     Dosage: 2.5 MG (MILLIGRAM)
     Route: 065
  7. SIMVASTATIN [Concomitant]
     Active Substance: SIMVASTATIN
     Dosage: 40 MG (MILLIGRAM)
     Route: 065

REACTIONS (1)
  - Sepsis [Fatal]
